FAERS Safety Report 7279827-7 (Version None)
Quarter: 2011Q1

REPORT INFORMATION
  Report Type: 
  Country: None (occurrence: None)
  Receive Date: 20110208
  Receipt Date: 20110121
  Transmission Date: 20110831
  Serious: Yes (Other)
  Sender: FDA-Public Use
  Company Number: US-BAYER-200910649NA

PATIENT
  Sex: Female

DRUGS (1)
  1. MIRENA [Suspect]
     Indication: CONTRACEPTION
     Dosage: CONTINUOUS
     Route: 015
     Dates: start: 20090106, end: 20090101

REACTIONS (12)
  - DEVICE DISLOCATION [None]
  - GENITAL HAEMORRHAGE [None]
  - NAUSEA [None]
  - DYSURIA [None]
  - ABDOMINAL DISTENSION [None]
  - HEADACHE [None]
  - FATIGUE [None]
  - PAIN [None]
  - MIGRAINE [None]
  - PROCEDURAL PAIN [None]
  - DIARRHOEA [None]
  - POLYMENORRHOEA [None]
